FAERS Safety Report 12908401 (Version 2)
Quarter: 2016Q4

REPORT INFORMATION
  Report Type: Report from Study
  Country: AU (occurrence: AU)
  Receive Date: 20161103
  Receipt Date: 20161107
  Transmission Date: 20170207
  Serious: Yes (Other)
  Sender: FDA-Public Use
  Company Number: AU-MYLANLABS-2016M1046933

PATIENT
  Sex: Male

DRUGS (3)
  1. CLOZAPINE. [Suspect]
     Active Substance: CLOZAPINE
     Indication: SCHIZOPHRENIA
     Dosage: 300 MG, QD
     Route: 048
     Dates: start: 20110811
  2. PROPRANOLOL [Suspect]
     Active Substance: PROPRANOLOL\PROPRANOLOL HYDROCHLORIDE
     Indication: TREMOR
     Dosage: UNK
  3. BENZTROPINE [Suspect]
     Active Substance: BENZTROPINE
     Indication: TREMOR
     Dosage: UNK

REACTIONS (4)
  - Cognitive disorder [Unknown]
  - Tremor [Unknown]
  - Asthma [Not Recovered/Not Resolved]
  - Treatment noncompliance [Unknown]
